FAERS Safety Report 10744990 (Version 1)
Quarter: 2015Q1

REPORT INFORMATION
  Report Type: Spontaneous
  Country: IT (occurrence: IT)
  Receive Date: 20150128
  Receipt Date: 20150128
  Transmission Date: 20150721
  Serious: Yes (Death, Life-Threatening, Other)
  Sender: FDA-Public Use
  Company Number: IT-CELGENE-083-50794-14052329

PATIENT

DRUGS (2)
  1. VIDAZA [Suspect]
     Active Substance: AZACITIDINE
     Indication: ACUTE MYELOID LEUKAEMIA
  2. VIDAZA [Suspect]
     Active Substance: AZACITIDINE
     Indication: MYELODYSPLASTIC SYNDROME
     Dosage: 75 MILLIGRAM/SQ. METER
     Route: 058

REACTIONS (17)
  - Infection [Fatal]
  - Respiratory failure [Fatal]
  - Haemorrhage [Unknown]
  - Fatigue [Unknown]
  - Injection site erythema [Unknown]
  - Ischaemia [Fatal]
  - Haemoglobin decreased [Unknown]
  - Platelet count decreased [Unknown]
  - Treatment failure [Unknown]
  - Nausea [Unknown]
  - Neoplasm [Unknown]
  - Diarrhoea [Unknown]
  - Amyloidosis [Unknown]
  - Neutrophil count decreased [Unknown]
  - Disease progression [Unknown]
  - Pyrexia [Unknown]
  - Constipation [Unknown]
